FAERS Safety Report 16404815 (Version 1)
Quarter: 2019Q2

REPORT INFORMATION
  Report Type: Spontaneous
  Country: GB (occurrence: GB)
  Receive Date: 20190607
  Receipt Date: 20190607
  Transmission Date: 20190711
  Serious: Yes (Other)
  Sender: FDA-Public Use
  Company Number: GB-MYLANLABS-2019M1053275

PATIENT
  Age: 71 Year
  Sex: Female
  Weight: 66 kg

DRUGS (4)
  1. VALSARTAN. [Suspect]
     Active Substance: VALSARTAN
     Indication: HYPERTENSION
     Dosage: 40 MILLIGRAM
     Route: 048
     Dates: start: 20140421, end: 20170531
  2. OMEGA-3-ACID ETHYL ESTER [Concomitant]
     Active Substance: OMEGA-3-ACID ETHYL ESTERS
     Dosage: UNK
  3. CANDESARTAN. [Suspect]
     Active Substance: CANDESARTAN
     Indication: HYPERTENSION
     Dosage: 8 MILLIGRAM
     Dates: start: 20170415, end: 20170531
  4. RAMIPRIL. [Concomitant]
     Active Substance: RAMIPRIL
     Dosage: UNK

REACTIONS (4)
  - Nocturia [Not Recovered/Not Resolved]
  - Fatigue [Not Recovered/Not Resolved]
  - Dizziness [Not Recovered/Not Resolved]
  - Withdrawal syndrome [Not Recovered/Not Resolved]
